FAERS Safety Report 5563305-7 (Version None)
Quarter: 2007Q4

REPORT INFORMATION
  Report Type: 
  Country: None (occurrence: None)
  Receive Date: 20071211
  Receipt Date: 20071205
  Transmission Date: 20080405
  Serious: Yes (Death, Life-Threatening, Hospitalization, Other)
  Sender: FDA-Public Use
  Company Number: 2007SP000396

PATIENT
  Age: 67 Year
  Sex: Male
  Weight: 64 kg

DRUGS (5)
  1. PEG-INTRON [Suspect]
     Indication: HEPATITIS C
     Dosage: 80 MCG;QD; SC, 50 MCG;QW; SC, 40 MCG;QW; SC
     Route: 058
     Dates: start: 20060313, end: 20060320
  2. PEG-INTRON [Suspect]
     Indication: HEPATITIS C
     Dosage: 80 MCG;QD; SC, 50 MCG;QW; SC, 40 MCG;QW; SC
     Route: 058
     Dates: start: 20060327, end: 20060403
  3. PEG-INTRON [Suspect]
     Indication: HEPATITIS C
     Dosage: 80 MCG;QD; SC, 50 MCG;QW; SC, 40 MCG;QW; SC
     Route: 058
     Dates: start: 20060410, end: 20061219
  4. REBETOL [Suspect]
     Indication: HEPATITIS C
     Dosage: 800 MG;QD;PO, 600 MG,QD;PO
     Route: 048
     Dates: start: 20060313, end: 20060326
  5. REBETOL [Suspect]
     Indication: HEPATITIS C
     Dosage: 800 MG;QD;PO, 600 MG,QD;PO
     Route: 048
     Dates: start: 20060327, end: 20061226

REACTIONS (14)
  - ACUTE PULMONARY OEDEMA [None]
  - ACUTE RESPIRATORY DISTRESS SYNDROME [None]
  - ANAEMIA [None]
  - CYTOMEGALOVIRUS TEST POSITIVE [None]
  - ENTERITIS INFECTIOUS [None]
  - HEPATIC ATROPHY [None]
  - HEPATIC FAILURE [None]
  - PLATELET COUNT DECREASED [None]
  - PNEUMONIA [None]
  - PULMONARY OEDEMA [None]
  - RESPIRATORY FAILURE [None]
  - SEPSIS [None]
  - STAPHYLOCOCCAL INFECTION [None]
  - WHITE BLOOD CELL COUNT DECREASED [None]
